FAERS Safety Report 7861580-7 (Version None)
Quarter: 2011Q4

REPORT INFORMATION
  Report Type: 
  Country: None (occurrence: None)
  Receive Date: 20111027
  Receipt Date: 20111020
  Transmission Date: 20120403
  Serious: Yes (Other)
  Sender: FDA-Public Use
  Company Number: US-CELGENEUS-163-21880-11091770

PATIENT
  Sex: Female

DRUGS (2)
  1. REVLIMID [Suspect]
     Dosage: 20 MILLIGRAM
     Route: 048
     Dates: start: 20110812
  2. ARICEPT [Concomitant]
     Dosage: 10 MILLIGRAM
     Route: 048
     Dates: start: 20110830

REACTIONS (2)
  - DEMENTIA [None]
  - CONFUSIONAL STATE [None]
